FAERS Safety Report 9470895 (Version 3)
Quarter: 2015Q2

REPORT INFORMATION
  Report Type: Spontaneous
  Country: US (occurrence: US)
  Receive Date: 20130822
  Receipt Date: 20150615
  Transmission Date: 20150821
  Serious: Yes (Congenital Anomaly, Other)
  Sender: FDA-Public Use
  Company Number: US-ELI_LILLY_AND_COMPANY-US201308005434

PATIENT
  Weight: 3.18 kg

DRUGS (4)
  1. FLUOXETINE HYDROCHLORIDE. [Suspect]
     Active Substance: FLUOXETINE HYDROCHLORIDE
     Indication: DEPRESSION
     Dosage: 20 MG, UNKNOWN
     Route: 064
     Dates: start: 20010723
  2. PROZAC [Suspect]
     Active Substance: FLUOXETINE HYDROCHLORIDE
     Dosage: 20 MG, QD
     Route: 064
  3. PROZAC [Suspect]
     Active Substance: FLUOXETINE HYDROCHLORIDE
     Dosage: 20 MG, QD
     Route: 064
  4. PROZAC [Suspect]
     Active Substance: FLUOXETINE HYDROCHLORIDE
     Dosage: 10 MG, QD
     Route: 064

REACTIONS (20)
  - Atrial tachycardia [Unknown]
  - Parvovirus infection [Unknown]
  - Bronchial hyperreactivity [Unknown]
  - Bicuspid aortic valve [Unknown]
  - Vascular malformation [Unknown]
  - Dilatation ventricular [Unknown]
  - Pneumonia [Unknown]
  - Partial seizures [Unknown]
  - Supraventricular tachycardia [Unknown]
  - Viral myocarditis [Unknown]
  - Cerebral haemorrhage [Unknown]
  - Ventricular internal diameter abnormal [Unknown]
  - Mitral valve incompetence [Unknown]
  - Exposure during breast feeding [Unknown]
  - Pleural effusion [Unknown]
  - Foetal exposure during pregnancy [Recovered/Resolved]
  - Pericardial effusion [Unknown]
  - Atrial septal defect [Unknown]
  - Deafness neurosensory [Unknown]
  - Tricuspid valve incompetence [Unknown]

NARRATIVE: CASE EVENT DATE: 2005
